FAERS Safety Report 6187390-7 (Version None)
Quarter: 2009Q2

REPORT INFORMATION
  Report Type: 
  Country: None (occurrence: None)
  Receive Date: 20090512
  Receipt Date: 20090507
  Transmission Date: 20091009
  Serious: Yes (Other)
  Sender: FDA-Public Use
  Company Number: B0573372A

PATIENT
  Age: 58 Year
  Sex: Female

DRUGS (4)
  1. ZANTAC [Suspect]
     Indication: DRUG USE FOR UNKNOWN INDICATION
     Route: 048
  2. THEO-DUR [Concomitant]
     Route: 048
  3. MEPTIN [Concomitant]
     Route: 048
  4. ONON [Concomitant]
     Route: 048

REACTIONS (7)
  - EYE PAIN [None]
  - EYE PRURITUS [None]
  - HEADACHE [None]
  - LIP SWELLING [None]
  - PYREXIA [None]
  - RASH [None]
  - VISUAL ACUITY REDUCED [None]
